FAERS Safety Report 13012995 (Version 2)
Quarter: 2017Q1

REPORT INFORMATION
  Report Type: Report from Study
  Country: None (occurrence: AT)
  Receive Date: 20161209
  Receipt Date: 20170126
  Transmission Date: 20170428
  Serious: Yes (Other)
  Sender: FDA-Public Use
  Company Number: AT-BIOVITRUM-2016AT0711

PATIENT
  Age: 20 Year
  Sex: Female
  Weight: 84.1 kg

DRUGS (4)
  1. ORFADIN [Suspect]
     Active Substance: NITISINONE
     Indication: TYROSINAEMIA
     Dates: start: 20160523
  2. AMINO ACIDS [Concomitant]
     Active Substance: AMINO ACIDS
     Indication: SUPPLEMENTATION THERAPY
     Dosage: 80 G PER DAY DIVIDED ON MEALS
  3. ORFADIN [Suspect]
     Active Substance: NITISINONE
     Dates: start: 20080902, end: 20160522
  4. ORFADIN [Suspect]
     Active Substance: NITISINONE
     Dates: start: 19971125, end: 20080901

REACTIONS (3)
  - Abortion spontaneous [Recovered/Resolved]
  - Maternal exposure during pregnancy [Recovered/Resolved]
  - Benign hydatidiform mole [Recovered/Resolved]

NARRATIVE: CASE EVENT DATE: 20160912
